FAERS Safety Report 17846361 (Version 1)
Quarter: 2020Q2

REPORT INFORMATION
  Report Type: Spontaneous
  Country: US (occurrence: US)
  Receive Date: 20200601
  Receipt Date: 20200601
  Transmission Date: 20200714
  Serious: Yes (Other)
  Sender: FDA-Public Use
  Company Number: US-IPSEN BIOPHARMACEUTICALS, INC.-2020-09529

PATIENT
  Sex: Male

DRUGS (1)
  1. SOMATULINE DEPOT [Suspect]
     Active Substance: LANREOTIDE ACETATE
     Indication: NEUROENDOCRINE TUMOUR
     Dosage: SITE: UPPER OUTER BUTTOCKS.
     Route: 065
     Dates: start: 201801

REACTIONS (7)
  - Injection site nodule [Unknown]
  - Product administration error [Unknown]
  - Tumour inflammation [Unknown]
  - Pain [Unknown]
  - Injection site mass [Unknown]
  - Flushing [Unknown]
  - Drug ineffective [Unknown]
